FAERS Safety Report 22928374 (Version 2)
Quarter: 2023Q4

REPORT INFORMATION
  Report Type: Spontaneous
  Country: US (occurrence: US)
  Receive Date: 20230911
  Receipt Date: 20231129
  Transmission Date: 20240109
  Serious: No
  Sender: FDA-Public Use
  Company Number: US-SA-SAC20230906000052

PATIENT
  Age: 62 Year
  Sex: Female
  Weight: 65.3 kg

DRUGS (22)
  1. DUPIXENT [Suspect]
     Active Substance: DUPILUMAB
     Indication: Dermatitis atopic
     Dosage: 600 MG, 1X
     Route: 058
     Dates: start: 20230628, end: 20230628
  2. DUPIXENT [Suspect]
     Active Substance: DUPILUMAB
     Dosage: 300 MG, QOW
     Route: 058
     Dates: start: 202307
  3. ESCITALOPRAM [Concomitant]
     Active Substance: ESCITALOPRAM OXALATE
  4. SUMATRIPTAN [Concomitant]
     Active Substance: SUMATRIPTAN
  5. POTASSIUM [Concomitant]
     Active Substance: POTASSIUM
  6. CLOBETASOL PROPIONATE [Concomitant]
     Active Substance: CLOBETASOL PROPIONATE
  7. LISINOPRIL [Concomitant]
     Active Substance: LISINOPRIL
  8. VITAMIN D2 [Concomitant]
     Active Substance: ERGOCALCIFEROL
  9. TRULICITY [Concomitant]
     Active Substance: DULAGLUTIDE
  10. HYDROXYZINE [Concomitant]
     Active Substance: HYDROXYZINE HYDROCHLORIDE
  11. ATORVASTATIN [Concomitant]
     Active Substance: ATORVASTATIN
  12. LOSARTAN [Concomitant]
     Active Substance: LOSARTAN
  13. TERBINAFINE [Concomitant]
     Active Substance: TERBINAFINE
  14. TRIAMCINOLONE ACETONIDE [Concomitant]
     Active Substance: TRIAMCINOLONE ACETONIDE
  15. CICLOPIROX [Concomitant]
     Active Substance: CICLOPIROX\TOCOPHEROL
  16. ATROPINE\DIPHENOXYLATE [Concomitant]
     Active Substance: ATROPINE\DIPHENOXYLATE
  17. ICOSAPENT [Concomitant]
     Active Substance: ICOSAPENT
  18. CHLORTHALIDONE [Concomitant]
     Active Substance: CHLORTHALIDONE
  19. OXYCODONE [Concomitant]
     Active Substance: OXYCODONE
  20. NALOXONE [Concomitant]
     Active Substance: NALOXONE
  21. METHOCARBAMOL [Concomitant]
     Active Substance: METHOCARBAMOL
  22. NYSTOP [Concomitant]
     Active Substance: NYSTATIN

REACTIONS (1)
  - Drug ineffective [Unknown]

NARRATIVE: CASE EVENT DATE: 20230101
